FAERS Safety Report 17112326 (Version 1)
Quarter: 2019Q4

REPORT INFORMATION
  Report Type: Spontaneous
  Country: BE (occurrence: BE)
  Receive Date: 20191204
  Receipt Date: 20191204
  Transmission Date: 20200122
  Serious: Yes (Other)
  Sender: FDA-Public Use
  Company Number: BE-MYLANLABS-2019M1118239

PATIENT
  Sex: Male

DRUGS (2)
  1. GRANEXA [Concomitant]
     Dosage: A CHRONIC TREATMENT FOR SEVERAL MONTHS
     Route: 048
  2. DICLOFENAC MYLAN [Suspect]
     Active Substance: DICLOFENAC SODIUM
     Indication: PRODUCT USED FOR UNKNOWN INDICATION
     Dosage: UNK
     Route: 048

REACTIONS (2)
  - Palpitations [Recovered/Resolved]
  - Pain [Recovered/Resolved]
